FAERS Safety Report 9189880 (Version 1)
Quarter: 2013Q1

REPORT INFORMATION
  Report Type: Spontaneous
  Country: US (occurrence: US)
  Receive Date: 20130326
  Receipt Date: 20130326
  Transmission Date: 20140127
  Serious: Yes (Hospitalization, Other)
  Sender: FDA-Public Use
  Company Number: US-AMGEN-USASP2013018387

PATIENT
  Age: 84 Year
  Sex: Female

DRUGS (13)
  1. PROLIA [Suspect]
     Indication: OSTEOPOROSIS
     Dosage: UNK
     Dates: start: 201203
  2. PROTONIX [Concomitant]
     Dosage: UNK
     Dates: start: 2011, end: 2012
  3. PREVACID [Concomitant]
     Dates: start: 2012
  4. OSCAL D                            /00944201/ [Concomitant]
  5. VITAMIN D /00107901/ [Concomitant]
  6. ISOSORBIDE [Concomitant]
  7. METOPROLOL [Concomitant]
     Indication: PRODUCT USED FOR UNKNOWN INDICATION
  8. COZAAR [Concomitant]
  9. PLAQUENIL                          /00072602/ [Concomitant]
  10. NORVASC [Concomitant]
     Indication: PRODUCT USED FOR UNKNOWN INDICATION
  11. TRAVATAN [Concomitant]
  12. ZETIA [Concomitant]
     Dosage: 10 MG, QD
  13. RANEXA [Concomitant]

REACTIONS (9)
  - Vomiting [Unknown]
  - Syncope [Unknown]
  - Fall [Unknown]
  - Rib fracture [Unknown]
  - Hypothyroidism [Unknown]
  - Pain [Recovering/Resolving]
  - Gingival ulceration [Unknown]
  - Stomatitis [Unknown]
  - Aphagia [Unknown]
